FAERS Safety Report 14694295 (Version 1)
Quarter: 2018Q1

REPORT INFORMATION
  Report Type: Spontaneous
  Country: US (occurrence: US)
  Receive Date: 20180327
  Receipt Date: 20180327
  Transmission Date: 20180509
  Serious: Yes (Hospitalization)
  Sender: FDA-Public Use
  Company Number: None

PATIENT
  Age: 75 Year
  Sex: Male

DRUGS (23)
  1. OMEPRAZOLE. [Concomitant]
     Active Substance: OMEPRAZOLE
  2. METHYLPRED [Concomitant]
     Active Substance: METHYLPREDNISOLONE
  3. PREDNISONE. [Concomitant]
     Active Substance: PREDNISONE
  4. AMOXICILLIN. [Concomitant]
     Active Substance: AMOXICILLIN
  5. FLUTICASONE. [Concomitant]
     Active Substance: FLUTICASONE
  6. TRAMADOL. [Concomitant]
     Active Substance: TRAMADOL
  7. HYDROMET [Concomitant]
     Active Substance: HOMATROPINE METHYLBROMIDE\HYDROCODONE BITARTRATE
  8. HCTZ [Concomitant]
     Active Substance: HYDROCHLOROTHIAZIDE
  9. METOPROLOL. [Concomitant]
     Active Substance: METOPROLOL
  10. OSELTAMIVIR [Concomitant]
     Active Substance: OSELTAMIVIR
  11. ELIQUIS [Concomitant]
     Active Substance: APIXABAN
  12. OFEV [Concomitant]
     Active Substance: NINTEDANIB
  13. HYDROXYCHLOROQUINE [Concomitant]
     Active Substance: HYDROXYCHLOROQUINE
  14. ADVAIR HFA [Concomitant]
     Active Substance: FLUTICASONE PROPIONATE\SALMETEROL XINAFOATE
  15. CELECOXIB. [Concomitant]
     Active Substance: CELECOXIB
  16. TAMSULOSIN [Concomitant]
     Active Substance: TAMSULOSIN
  17. ROSUVASTATIN. [Concomitant]
     Active Substance: ROSUVASTATIN
  18. HUMIRA [Suspect]
     Active Substance: ADALIMUMAB
     Indication: RHEUMATOID ARTHRITIS
     Route: 058
     Dates: start: 20180307
  19. FUROSEMIDE. [Concomitant]
     Active Substance: FUROSEMIDE
  20. EPLERENONE. [Concomitant]
     Active Substance: EPLERENONE
  21. AZITHROMYCIN ANHYDROUS. [Concomitant]
     Active Substance: AZITHROMYCIN ANHYDROUS
  22. SUPREP BOWEL PREP [Concomitant]
     Active Substance: MAGNESIUM SULFATE\POTASSIUM SULFATE\SODIUM SULFATE
  23. DOK [Concomitant]
     Active Substance: DOCUSATE SODIUM

REACTIONS (1)
  - Pleurisy [None]

NARRATIVE: CASE EVENT DATE: 201803
